FAERS Safety Report 24663722 (Version 1)
Quarter: 2024Q4

REPORT INFORMATION
  Report Type: Spontaneous
  Country: HR (occurrence: HR)
  Receive Date: 20241126
  Receipt Date: 20241126
  Transmission Date: 20250115
  Serious: Yes (Other)
  Sender: UCB
  Company Number: None

PATIENT
  Age: 16 Year
  Sex: Female
  Weight: 65 kg

DRUGS (3)
  1. KEPPRA [Suspect]
     Active Substance: LEVETIRACETAM
     Indication: Product used for unknown indication
     Dosage: THE FEMALE PATIENT HAS TAKEN 20 PILLS IN TOTAL, THE DOSE OF EACH PILL IS NOT KNOWN
     Route: 048
     Dates: start: 20241012, end: 20241012
  2. ESCITALOPRAM OXALATE [Suspect]
     Active Substance: ESCITALOPRAM OXALATE
     Indication: Product used for unknown indication
     Dosage: THE FEMALE PATIENT HAS TAKEN 20 PILLS IN TOTAL, THE DOSE OF EACH PILL IS NOT KNOWN
     Route: 048
     Dates: start: 20241012, end: 20241012
  3. DIAZEPAM [Suspect]
     Active Substance: DIAZEPAM
     Indication: Product used for unknown indication
     Dosage: THE FEMALE PATIENT HAS TAKEN 20 PILLS IN TOTAL, THE DOSE OF EACH PILL IS NOT KNOWN
     Route: 048
     Dates: start: 20241012, end: 20241012

REACTIONS (4)
  - Suicide attempt [Unknown]
  - Hypersomnia [Unknown]
  - Dysarthria [Unknown]
  - Increased need for sleep [Unknown]

NARRATIVE: CASE EVENT DATE: 20241012
